FAERS Safety Report 24699286 (Version 1)
Quarter: 2024Q4

REPORT INFORMATION
  Report Type: Spontaneous
  Country: US (occurrence: US)
  Receive Date: 20241205
  Receipt Date: 20241205
  Transmission Date: 20250115
  Serious: No
  Sender: DR REDDYS
  Company Number: US-DRL-USA-SPO/USA/24/0017586

PATIENT
  Age: 17 Year

DRUGS (1)
  1. ACCUTANE [Suspect]
     Active Substance: ISOTRETINOIN
     Indication: Product used for unknown indication
     Route: 065
     Dates: start: 20071114

REACTIONS (2)
  - Rash [Recovering/Resolving]
  - Adverse drug reaction [Unknown]
